FAERS Safety Report 5754925-5 (Version None)
Quarter: 2008Q2

REPORT INFORMATION
  Report Type: 
  Country: None (occurrence: None)
  Receive Date: 20080527
  Receipt Date: 20080509
  Transmission Date: 20081010
  Serious: Yes (Death)
  Sender: FDA-Public Use
  Company Number: 2008AL004703

PATIENT
  Age: 66 Year
  Sex: Female
  Weight: 56.6996 kg

DRUGS (6)
  1. DIGOXIN [Suspect]
     Indication: ATRIAL FIBRILLATION
     Dosage: .125MG DAILY PO
     Route: 048
  2. COUMADIN [Concomitant]
  3. CORGARD [Concomitant]
  4. ZOCOR [Concomitant]
  5. SYNTHROID [Concomitant]
  6. LORAZEPAM [Concomitant]

REACTIONS (10)
  - ABDOMINAL PAIN UPPER [None]
  - ASTHENIA [None]
  - FALL [None]
  - HEART RATE DECREASED [None]
  - LETHARGY [None]
  - LOSS OF CONSCIOUSNESS [None]
  - NAUSEA [None]
  - RENAL FAILURE [None]
  - THERAPEUTIC AGENT TOXICITY [None]
  - VOMITING [None]
